FAERS Safety Report 10635829 (Version 1)
Quarter: 2014Q4

REPORT INFORMATION
  Report Type: Spontaneous
  Country: SE (occurrence: SE)
  Receive Date: 20141205
  Receipt Date: 20141205
  Transmission Date: 20150529
  Serious: Yes (Other)
  Sender: FDA-Public Use
  Company Number: PHHY2014SE155345

PATIENT
  Age: 79 Year
  Sex: Female

DRUGS (1)
  1. SPARKAL [Suspect]
     Active Substance: AMILORIDE HYDROCHLORIDE
     Dates: start: 20140822, end: 20141115

REACTIONS (1)
  - Renal impairment [Unknown]

NARRATIVE: CASE EVENT DATE: 20141115
